FAERS Safety Report 8256706-X (Version None)
Quarter: 2012Q2

REPORT INFORMATION
  Report Type: 
  Country: None (occurrence: None)
  Receive Date: 20120403
  Receipt Date: 20120328
  Transmission Date: 20120825
  Serious: No
  Sender: FDA-Public Use
  Company Number: US-PFIZER INC-2012070139

PATIENT
  Sex: Female
  Weight: 68 kg

DRUGS (12)
  1. DIVALPROEX SODIUM [Concomitant]
     Dosage: 500 MG, 2X/DAY
  2. PRILOSEC [Concomitant]
     Dosage: 20 MG, 1X/DAY
  3. HYDROCHLOROTHIAZIDE [Concomitant]
     Indication: HYPERTENSION
     Dosage: 25 MG, 1X/DAY
  4. LEVOTHYROXINE [Concomitant]
     Indication: THYROID DISORDER
     Dosage: 50 UG, UNK
  5. LISINOPRIL [Concomitant]
     Indication: HYPERTENSION
     Dosage: 40 MG, 2X/DAY
  6. CALCIUM [Concomitant]
     Dosage: UNK, 1X/DAY
  7. CHANTIX [Suspect]
     Indication: SMOKING CESSATION THERAPY
     Dosage: 0.5 MG, UNK
     Route: 048
     Dates: start: 20120309, end: 20120301
  8. DETROL LA [Concomitant]
     Dosage: 2 MG, 1X/DAY
  9. CHANTIX [Suspect]
     Dosage: 1 MG, 2X/DAY
     Route: 048
     Dates: start: 20120301, end: 20120321
  10. DEPAKOTE [Concomitant]
     Dosage: 500 MG, UNK
  11. LIPITOR [Concomitant]
     Dosage: 80 MG, 1X/DAY
  12. AMLODIPINE [Concomitant]
     Dosage: 5 MG, 1X/DAY

REACTIONS (5)
  - INSOMNIA [None]
  - MALAISE [None]
  - NAUSEA [None]
  - AGITATION [None]
  - VOMITING [None]
